FAERS Safety Report 20017093 (Version 1)
Quarter: 2021Q4

REPORT INFORMATION
  Report Type: Spontaneous
  Country: CA (occurrence: CA)
  Receive Date: 20211030
  Receipt Date: 20211030
  Transmission Date: 20220303
  Serious: Yes (Hospitalization, Other)
  Sender: FDA-Public Use
  Company Number: CA-PURACAP-CA-2021EPCLIT01115

PATIENT

DRUGS (3)
  1. IBUPROFEN [Suspect]
     Active Substance: IBUPROFEN
     Indication: Frostbite
     Route: 048
  2. ILOPROST [Concomitant]
     Active Substance: ILOPROST
     Indication: Frostbite
     Route: 065
  3. ALOE VERA LEAF [Concomitant]
     Active Substance: ALOE VERA LEAF
     Indication: Frostbite
     Route: 065

REACTIONS (2)
  - Duodenal ulcer perforation [Unknown]
  - Product use in unapproved indication [Recovered/Resolved with Sequelae]
